FAERS Safety Report 4607524-2 (Version None)
Quarter: 2005Q1

REPORT INFORMATION
  Report Type: 
  Country: None (occurrence: None)
  Receive Date: 20050309
  Receipt Date: 20050222
  Transmission Date: 20050727
  Serious: Yes (Other)
  Sender: FDA-Public Use
  Company Number: DE_041114728

PATIENT
  Age: 67 Year
  Sex: Female
  Weight: 80 kg

DRUGS (5)
  1. GEMZAR [Suspect]
     Indication: OVARIAN CANCER
     Dosage: 1850 MG
     Dates: start: 20040929
  2. PANTOPRAZOLE SODIUM [Concomitant]
  3. OXYCODONE HCL [Concomitant]
  4. FOSAMAX [Concomitant]
  5. AMITRIPTYLINE HCL [Concomitant]

REACTIONS (9)
  - C-REACTIVE PROTEIN INCREASED [None]
  - ERYSIPELAS [None]
  - HYPERTHERMIA [None]
  - INDURATION [None]
  - PAIN [None]
  - RED BLOOD CELL SEDIMENTATION RATE INCREASED [None]
  - SKIN REACTION [None]
  - THROMBOPHLEBITIS [None]
  - VEIN DISORDER [None]
